FAERS Safety Report 20680715 (Version 1)
Quarter: 2022Q2

REPORT INFORMATION
  Report Type: Report from Study
  Country: CA (occurrence: CA)
  Receive Date: 20220406
  Receipt Date: 20220406
  Transmission Date: 20220720
  Serious: Yes (Hospitalization, Other)
  Sender: FDA-Public Use
  Company Number: CA-JNJFOC-20220358867

PATIENT
  Age: 70 Year
  Sex: Female

DRUGS (2)
  1. STELARA [Suspect]
     Active Substance: USTEKINUMAB
     Indication: Crohn^s disease
     Dosage: ON 17/APR/2021 PATIENT RECEIVED STELARA
     Route: 058
     Dates: start: 20210220
  2. STELARA [Suspect]
     Active Substance: USTEKINUMAB

REACTIONS (2)
  - Ovarian operation [Not Recovered/Not Resolved]
  - Post procedural infection [Unknown]

NARRATIVE: CASE EVENT DATE: 20220321
